FAERS Safety Report 7783453-0 (Version None)
Quarter: 2011Q3

REPORT INFORMATION
  Report Type: 
  Country: None (occurrence: None)
  Receive Date: 20110928
  Receipt Date: 20110928
  Transmission Date: 20111222
  Serious: Yes (Life-Threatening, Other)
  Sender: FDA-Public Use
  Company Number: None

PATIENT
  Age: 18 Year
  Sex: Female
  Weight: 68.038 kg

DRUGS (1)
  1. NUVARING [Suspect]
     Dosage: ONE
     Route: 015

REACTIONS (5)
  - EMOTIONAL DISORDER [None]
  - MENTAL DISORDER [None]
  - TEARFULNESS [None]
  - ANGER [None]
  - PARANOIA [None]
